FAERS Safety Report 8833118 (Version 2)
Quarter: 2013Q1

REPORT INFORMATION
  Report Type: Spontaneous
  Country: US (occurrence: US)
  Receive Date: 20121010
  Receipt Date: 20130125
  Transmission Date: 20140127
  Serious: Yes (Life-Threatening, Hospitalization)
  Sender: FDA-Public Use
  Company Number: US-FRI-1000039108

PATIENT
  Age: 55 None
  Sex: Female
  Weight: 71.7 kg

DRUGS (7)
  1. VIIBRYD [Suspect]
     Indication: DEPRESSION
     Dosage: STANDARD TITRATION 10-40 MG
     Route: 048
     Dates: start: 20120327
  2. VIIBRYD [Suspect]
     Dosage: 40 MG
     Route: 048
     Dates: end: 201205
  3. VIIBRYD [Suspect]
     Dosage: 20 MG
     Route: 048
     Dates: start: 201205, end: 201205
  4. VIIBRYD [Suspect]
     Dosage: 10 MG
     Route: 048
     Dates: start: 201205, end: 201205
  5. VIIBRYD [Suspect]
     Dosage: 5 MG
     Route: 048
  6. XANAX [Concomitant]
     Indication: ANXIETY DISORDER
     Dosage: 0.5 MG
  7. LISINOPRIL [Concomitant]
     Indication: HYPERTENSION
     Dosage: 10 MG

REACTIONS (6)
  - Myocardial infarction [Recovered/Resolved]
  - Iliac artery rupture [Recovered/Resolved with Sequelae]
  - Amnesia [Not Recovered/Not Resolved]
  - Sleep terror [Recovered/Resolved]
  - Tremor [Recovered/Resolved]
  - Drug ineffective [Unknown]
